FAERS Safety Report 26095074 (Version 1)
Quarter: 2025Q4

REPORT INFORMATION
  Report Type: Report from Study
  Country: CN (occurrence: CN)
  Receive Date: 20251127
  Receipt Date: 20251127
  Transmission Date: 20260118
  Serious: Yes (Other)
  Sender: ROCHE
  Company Number: CN-ROCHE-10000439806

PATIENT
  Age: 70 Year
  Sex: Male

DRUGS (1)
  1. BEVACIZUMAB [Suspect]
     Active Substance: BEVACIZUMAB
     Indication: Rectal cancer
     Dosage: 500MG/TIME?3WEEK/TIME?100 MG
     Route: 042
     Dates: start: 20160112

REACTIONS (2)
  - Back pain [Unknown]
  - Immobile [Unknown]
